FAERS Safety Report 6396533-1 (Version None)
Quarter: 2009Q4

REPORT INFORMATION
  Report Type: 
  Country: None (occurrence: None)
  Receive Date: 20091008
  Receipt Date: 20091008
  Transmission Date: 20100525
  Serious: Yes (Other)
  Sender: FDA-Public Use
  Company Number: None

PATIENT
  Age: 56 Year
  Sex: Male

DRUGS (2)
  1. DORZOLAMIDE HYDROCHLORIDE AND TIMOLOL MALEATE [Suspect]
     Indication: OPEN ANGLE GLAUCOMA
     Dosage: ONE DROP BID EACH EYE
     Route: 047
  2. COSOPT [Suspect]

REACTIONS (5)
  - ERYTHEMA [None]
  - EYE DISCHARGE [None]
  - EYELID DISORDER [None]
  - PRODUCT SUBSTITUTION ISSUE [None]
  - SWELLING [None]
